FAERS Safety Report 21223062 (Version 1)
Quarter: 2022Q3

REPORT INFORMATION
  Report Type: Spontaneous
  Country: KR (occurrence: KR)
  Receive Date: 20220817
  Receipt Date: 20220817
  Transmission Date: 20221026
  Serious: Yes (Other)
  Sender: FDA-Public Use
  Company Number: KR-ELI_LILLY_AND_COMPANY-KR202208004962

PATIENT
  Age: 64 Year
  Sex: Female

DRUGS (1)
  1. CYMBALTA [Suspect]
     Active Substance: DULOXETINE HYDROCHLORIDE
     Indication: Polyneuropathy
     Dosage: 30 MG, DAILY
     Route: 065
     Dates: start: 20141126, end: 20141201

REACTIONS (5)
  - Angioedema [Recovering/Resolving]
  - Sensory disturbance [Recovering/Resolving]
  - Oedema peripheral [Recovering/Resolving]
  - Rash [Recovering/Resolving]
  - Off label use [Unknown]

NARRATIVE: CASE EVENT DATE: 20141201
